FAERS Safety Report 11238538 (Version 1)
Quarter: 2015Q3

REPORT INFORMATION
  Report Type: Report from Study
  Country: FR (occurrence: FR)
  Receive Date: 20150705
  Receipt Date: 20150705
  Transmission Date: 20151125
  Serious: Yes (Hospitalization)
  Sender: FDA-Public Use
  Company Number: FR-MERCK-1503FRA001133

PATIENT
  Age: 58 Year
  Sex: Male
  Weight: 69 kg

DRUGS (12)
  1. TEMSIROLIMUS [Suspect]
     Active Substance: TEMSIROLIMUS
     Indication: MANTLE CELL LYMPHOMA
     Dosage: 15 MG, QD
     Route: 065
     Dates: start: 20141107, end: 20141113
  2. ASPIRIN LYSINE [Concomitant]
     Active Substance: ASPIRIN LYSINE
     Indication: CARDIOVASCULAR EVENT PROPHYLAXIS
     Dosage: UNK
  3. LEUCOVORIN CALCIUM. [Concomitant]
     Active Substance: LEUCOVORIN CALCIUM
     Indication: PROPHYLAXIS
     Dosage: UNK
     Dates: start: 20141106
  4. TEMSIROLIMUS [Suspect]
     Active Substance: TEMSIROLIMUS
     Dosage: 15 MG, QD
     Route: 065
     Dates: start: 201411, end: 20141120
  5. SULFAMETHOXAZOLE (+) TRIMETHOPRIM [Concomitant]
     Active Substance: SULFAMETHOXAZOLE\TRIMETHOPRIM
     Indication: INFECTION PROPHYLAXIS
     Dosage: UNK
     Dates: start: 20141106
  6. VALACYCLOVIR HYDROCHLORIDE. [Concomitant]
     Active Substance: VALACYCLOVIR HYDROCHLORIDE
     Indication: INFECTION PROPHYLAXIS
     Dosage: UNK
     Dates: start: 20141106
  7. PENICILLIN V [Concomitant]
     Active Substance: PENICILLIN V
     Indication: INFECTION PROPHYLAXIS
     Dosage: UNK
     Dates: start: 20141106
  8. ESOMEPRAZOLE [Concomitant]
     Active Substance: ESOMEPRAZOLE
     Indication: GASTROOESOPHAGEAL REFLUX PROPHYLAXIS
     Dosage: UNK
     Dates: start: 20141106
  9. DEXAMETHASONE. [Suspect]
     Active Substance: DEXAMETHASONE
     Indication: MANTLE CELL LYMPHOMA
     Dosage: UNK
     Route: 048
     Dates: start: 20141106
  10. RITUXIMAB [Suspect]
     Active Substance: RITUXIMAB
     Indication: MANTLE CELL LYMPHOMA
     Dosage: UNK
     Route: 065
     Dates: start: 20141106
  11. HYDROCHLOROTHIAZIDE (+) IRBESARTAN HYDROCHLORIDE [Concomitant]
     Indication: HYPERTENSION
     Dosage: UNK
  12. ROSUVASTATIN CALCIUM. [Concomitant]
     Active Substance: ROSUVASTATIN CALCIUM
     Indication: HYPERCHOLESTEROLAEMIA
     Dosage: UNK

REACTIONS (3)
  - Laryngeal haemorrhage [Recovered/Resolved]
  - Laryngeal necrosis [Recovered/Resolved]
  - Thrombocytopenia [Unknown]

NARRATIVE: CASE EVENT DATE: 201411
